FAERS Safety Report 16174477 (Version 1)
Quarter: 2019Q2

REPORT INFORMATION
  Report Type: Spontaneous
  Country: TR (occurrence: TR)
  Receive Date: 20190409
  Receipt Date: 20190409
  Transmission Date: 20190711
  Serious: Yes (Hospitalization, Other)
  Sender: FDA-Public Use
  Company Number: TR-SA-2019SA092201

PATIENT
  Age: 15 Year
  Sex: Female

DRUGS (1)
  1. DOXYLAMINE SUCCINATE. [Suspect]
     Active Substance: DOXYLAMINE SUCCINATE
     Indication: SUICIDE ATTEMPT
     Dosage: 25 MG/ PILLS, TOTAL DOSE 40MG/KG
     Route: 048

REACTIONS (11)
  - Seizure [Recovered/Resolved]
  - Hallucination, visual [Recovered/Resolved]
  - Tachycardia [Recovered/Resolved]
  - Overdose [Unknown]
  - Mydriasis [Recovered/Resolved]
  - Hallucination [Recovered/Resolved]
  - Flushing [Recovered/Resolved]
  - Rhabdomyolysis [Recovered/Resolved]
  - Dysarthria [Recovered/Resolved]
  - Generalised tonic-clonic seizure [Recovered/Resolved]
  - Agitation [Recovered/Resolved]
